FAERS Safety Report 7816459-3 (Version None)
Quarter: 2011Q4

REPORT INFORMATION
  Report Type: 
  Country: None (occurrence: None)
  Receive Date: 20111017
  Receipt Date: 20111005
  Transmission Date: 20120403
  Serious: Yes (Other)
  Sender: FDA-Public Use
  Company Number: DE-JNJFOC-20111004119

PATIENT
  Sex: Male
  Weight: 90 kg

DRUGS (3)
  1. SIXANTONE [Concomitant]
     Route: 065
  2. ABIRATERONE [Suspect]
     Indication: PRODUCT USED FOR UNKNOWN INDICATION
     Route: 048
     Dates: start: 20110502, end: 20110830
  3. ABIRATERONE [Suspect]
     Route: 048

REACTIONS (1)
  - TRANSAMINASES INCREASED [None]
